FAERS Safety Report 8772819 (Version 1)
Quarter: 2012Q4

REPORT INFORMATION
  Report Type: 
  Country: JP (occurrence: JP)
  Receive Date: 20120907
  Receipt Date: 20120907
  Transmission Date: 20130627
  Serious: Yes (Death, Other)
  Sender: FDA-Public Use
  Company Number: PHHY2010JP094793

PATIENT

DRUGS (3)
  1. CICLOSPORIN [Suspect]
     Indication: INTERSTITIAL LUNG DISEASE
  2. PREDNISOLONE ACETATE SANDOZ [Suspect]
     Indication: INTERSTITIAL LUNG DISEASE
     Dosage: 1 mg/kg, UNK
  3. CORTICOSTEROIDS [Suspect]
     Indication: INTERSTITIAL LUNG DISEASE

REACTIONS (3)
  - Interstitial lung disease [Fatal]
  - Fibrosis [Fatal]
  - Condition aggravated [Unknown]
